FAERS Safety Report 8314514-5 (Version None)
Quarter: 2012Q2

REPORT INFORMATION
  Report Type: 
  Country: None (occurrence: None)
  Receive Date: 20120426
  Receipt Date: 20120420
  Transmission Date: 20120825
  Serious: Yes (Hospitalization)
  Sender: FDA-Public Use
  Company Number: GB-ROCHE-1061972

PATIENT
  Sex: Female
  Weight: 64 kg

DRUGS (2)
  1. MABTHERA [Suspect]
     Indication: RHEUMATOID ARTHRITIS
     Route: 065
     Dates: start: 20090508
  2. METHOTREXATE [Concomitant]
     Route: 065

REACTIONS (1)
  - COLITIS ULCERATIVE [None]
